FAERS Safety Report 14521993 (Version 1)
Quarter: 2018Q1

REPORT INFORMATION
  Report Type: Spontaneous
  Country: TR (occurrence: TR)
  Receive Date: 20180212
  Receipt Date: 20180212
  Transmission Date: 20180509
  Serious: Yes (Other)
  Sender: FDA-Public Use
  Company Number: TR-GE HEALTHCARE LIFE SCIENCES-2018CSU000585

PATIENT

DRUGS (5)
  1. CLOPIDOGREL [Concomitant]
     Active Substance: CLOPIDOGREL BISULFATE
  2. HEPARIN [Concomitant]
     Active Substance: HEPARIN SODIUM
     Dosage: 15000 IU, UNK
     Route: 065
  3. TIROFIBAN [Concomitant]
     Active Substance: TIROFIBAN
  4. ACETYLSALICYLIC ACID [Concomitant]
     Active Substance: ASPIRIN
  5. OMNIPAQUE [Suspect]
     Active Substance: IOHEXOL
     Indication: ACUTE CORONARY SYNDROME
     Dosage: 400 ML, SINGLE
     Route: 013

REACTIONS (2)
  - Contrast encephalopathy [Recovered/Resolved]
  - Incorrect dose administered [Recovered/Resolved]
